FAERS Safety Report 7551352-5 (Version None)
Quarter: 2011Q2

REPORT INFORMATION
  Report Type: 
  Country: None (occurrence: None)
  Receive Date: 20110616
  Receipt Date: 20110601
  Transmission Date: 20111010
  Serious: Yes (Death, Hospitalization)
  Sender: FDA-Public Use
  Company Number: DE-VALEANT-2011VX000782

PATIENT
  Age: 84 Year
  Sex: Female

DRUGS (9)
  1. RAMICLAIR [Concomitant]
     Route: 065
  2. DIHYDROERGOTAMINE MESYLATE [Concomitant]
     Route: 065
     Dates: start: 20110301
  3. TOLCAPONE [Suspect]
     Route: 065
     Dates: start: 20090601
  4. NOVAMINSULFON [Concomitant]
     Route: 065
  5. TORSEMIDE [Concomitant]
     Route: 065
  6. MADOPAR [Concomitant]
     Route: 065
  7. ASPIRIN [Concomitant]
     Route: 065
     Dates: end: 20110204
  8. TILIDINE [Concomitant]
     Route: 065
  9. AMLODIPINE [Concomitant]
     Route: 065

REACTIONS (3)
  - SUDDEN DEATH [None]
  - CARDIAC DISORDER [None]
  - ALANINE AMINOTRANSFERASE DECREASED [None]
